FAERS Safety Report 9372779 (Version 2)
Quarter: 2013Q3

REPORT INFORMATION
  Report Type: Spontaneous
  Country: FR (occurrence: FR)
  Receive Date: 20130627
  Receipt Date: 20130710
  Transmission Date: 20140515
  Serious: No
  Sender: FDA-Public Use
  Company Number: FR-JNJFOC-20130611364

PATIENT
  Age: 63 Year
  Sex: Female
  Weight: 76 kg

DRUGS (3)
  1. STELARA [Suspect]
     Indication: PSORIASIS
     Route: 058
     Dates: start: 20120309, end: 20130510
  2. COTAREG [Concomitant]
     Indication: HYPERTENSION
     Dosage: INITIATED BEFORE 2011
     Route: 048
  3. BI-PROFENID [Concomitant]
     Indication: PSORIATIC ARTHROPATHY
     Dosage: INITIATED BEFORE 2011
     Route: 048

REACTIONS (2)
  - Weight increased [Not Recovered/Not Resolved]
  - Incorrect dose administered [Unknown]
